FAERS Safety Report 5139851-7 (Version None)
Quarter: 2006Q4

REPORT INFORMATION
  Report Type: 
  Country: None (occurrence: None)
  Receive Date: 20061026
  Receipt Date: 20061026
  Transmission Date: 20070319
  Serious: Yes (Hospitalization)
  Sender: FDA-Public Use
  Company Number: None

PATIENT
  Age: 71 Year
  Sex: Female
  Weight: 59.4212 kg

DRUGS (1)
  1. NAMENDA [Suspect]
     Dosage: 10MG  BID  PO
     Route: 048
     Dates: start: 20060911, end: 20061011

REACTIONS (3)
  - CARDIAC FAILURE CONGESTIVE [None]
  - DRUG INEFFECTIVE [None]
  - FLUID OVERLOAD [None]
